FAERS Safety Report 21381664 (Version 7)
Quarter: 2023Q2

REPORT INFORMATION
  Report Type: Report from Study
  Country: US (occurrence: US)
  Receive Date: 20220927
  Receipt Date: 20230525
  Transmission Date: 20230722
  Serious: No
  Sender: FDA-Public Use
  Company Number: US-NOVARTISTESTPH-NVSC2022US218376

PATIENT
  Sex: Female

DRUGS (2)
  1. COSENTYX [Suspect]
     Active Substance: SECUKINUMAB
     Indication: Psoriasis
     Dosage: 300 MG, QW (ONCE WEEKLY FOR 5 WEEKS, THEN ONCE EVERY 4 WEEKS)
     Route: 058
     Dates: start: 20220908
  2. COSENTYX [Suspect]
     Active Substance: SECUKINUMAB
     Dosage: 300 MG, QMO (EVERY 4 WEEKS)
     Route: 058

REACTIONS (9)
  - Headache [Unknown]
  - Myalgia [Unknown]
  - Stress [Unknown]
  - Anxiety [Unknown]
  - Psoriasis [Unknown]
  - Pigmentation disorder [Unknown]
  - Skin plaque [Unknown]
  - Dry skin [Not Recovered/Not Resolved]
  - Therapeutic product effect decreased [Unknown]
